FAERS Safety Report 4455169-X (Version None)
Quarter: 2004Q3

REPORT INFORMATION
  Report Type: 
  Country: None (occurrence: None)
  Receive Date: 20040917
  Receipt Date: 20040909
  Transmission Date: 20050211
  Serious: Yes (Other)
  Sender: FDA-Public Use
  Company Number: 2004059834

PATIENT
  Sex: Male

DRUGS (2)
  1. UNASYN [Suspect]
     Indication: INFECTION
     Dosage: INTRAVENOUS
     Route: 042
  2. ALL OTEHR THERAPEUTIC PRODUCTS (ALL OTHER THERAPEUTIC PRODUCTUS) [Suspect]
     Indication: INFECTION

REACTIONS (2)
  - CONDITION AGGRAVATED [None]
  - CONVULSION [None]
